FAERS Safety Report 8873882 (Version 2)
Quarter: 2012Q4

REPORT INFORMATION
  Report Type: 
  Country: IT (occurrence: IT)
  Receive Date: 20121030
  Receipt Date: 20121120
  Transmission Date: 20130627
  Serious: Yes (Hospitalization)
  Sender: FDA-Public Use
  Company Number: IT-ELI_LILLY_AND_COMPANY-IT201210007207

PATIENT
  Age: 40 Year
  Sex: Male

DRUGS (5)
  1. HUMULIN REGULAR [Suspect]
     Indication: DIABETES MELLITUS
     Dosage: 80 u, UNK
     Route: 058
     Dates: start: 20120530, end: 20120530
  2. LANTUS [Concomitant]
     Dosage: 30 u, UNK
     Dates: start: 20120530, end: 20120530
  3. GARDENALE [Concomitant]
     Indication: EPILEPSY
     Dosage: 1 DF, UNK
     Route: 048
  4. RIVOTRIL [Concomitant]
  5. DELORAZEPAM [Concomitant]
     Route: 048

REACTIONS (2)
  - Hypoglycaemic unconsciousness [Recovered/Resolved]
  - Suicide attempt [Recovered/Resolved]
